FAERS Safety Report 14084559 (Version 1)
Quarter: 2017Q4

REPORT INFORMATION
  Report Type: Spontaneous
  Country: US (occurrence: None)
  Receive Date: 20171013
  Receipt Date: 20171013
  Transmission Date: 20180321
  Serious: Yes (Hospitalization)
  Sender: FDA-Public Use
  Company Number: None

PATIENT
  Age: 59 Year
  Sex: Male

DRUGS (10)
  1. RESTASIS [Concomitant]
     Active Substance: CYCLOSPORINE
  2. LACRISERT [Concomitant]
     Active Substance: HYDROXYPROPYL CELLULOSE
  3. ENBREL [Concomitant]
     Active Substance: ETANERCEPT
  4. NAPROSYN [Concomitant]
     Active Substance: NAPROXEN
  5. SULFASALAZINE DELAYED-RELEASE [Concomitant]
     Active Substance: SULFASALAZINE
  6. ENBREL [Suspect]
     Active Substance: ETANERCEPT
     Route: 058
  7. PREDNISONE. [Concomitant]
     Active Substance: PREDNISONE
  8. NAPROXEN. [Concomitant]
     Active Substance: NAPROXEN
  9. OMEPRAZOLE. [Concomitant]
     Active Substance: OMEPRAZOLE
  10. PRILOSEC [Concomitant]
     Active Substance: OMEPRAZOLE MAGNESIUM

REACTIONS (1)
  - Surgery [None]

NARRATIVE: CASE EVENT DATE: 201708
